FAERS Safety Report 10081830 (Version 3)
Quarter: 2014Q4

REPORT INFORMATION
  Report Type: Spontaneous
  Country: US (occurrence: US)
  Receive Date: 20140416
  Receipt Date: 20141124
  Transmission Date: 20150528
  Serious: No
  Sender: FDA-Public Use
  Company Number: US-009507513-1404USA007789

PATIENT
  Sex: Male
  Weight: 83.9 kg

DRUGS (1)
  1. PROPECIA [Suspect]
     Active Substance: FINASTERIDE
     Indication: ANDROGENETIC ALOPECIA
     Dosage: 1 MG, UNK
     Route: 048
     Dates: start: 19980224, end: 20031021

REACTIONS (11)
  - Varicocele [Unknown]
  - Hypogonadism [Recovered/Resolved]
  - Loss of libido [Not Recovered/Not Resolved]
  - Penile contusion [Recovering/Resolving]
  - Erectile dysfunction [Unknown]
  - Performance fear [Unknown]
  - Cognitive disorder [Unknown]
  - Sexual dysfunction [Unknown]
  - Varicocele [Unknown]
  - Nasopharyngitis [Unknown]
  - Depression [Recovering/Resolving]

NARRATIVE: CASE EVENT DATE: 20031021
